FAERS Safety Report 20762496 (Version 2)
Quarter: 2022Q2

REPORT INFORMATION
  Report Type: Report from Study
  Country: US (occurrence: US)
  Receive Date: 20220428
  Receipt Date: 20220507
  Transmission Date: 20220720
  Serious: Yes (Life-Threatening, Hospitalization, Other)
  Sender: FDA-Public Use
  Company Number: US-BRISTOL-MYERS SQUIBB COMPANY-2022-022378

PATIENT
  Age: 34 Year
  Sex: Female
  Weight: 97.5 kg

DRUGS (3)
  1. NIVOLUMAB [Suspect]
     Active Substance: NIVOLUMAB
     Indication: Soft tissue neoplasm
     Route: 065
     Dates: start: 20220222, end: 20220402
  2. PACLITAXEL [Suspect]
     Active Substance: PACLITAXEL
     Indication: Soft tissue neoplasm
     Route: 065
     Dates: start: 20220222, end: 20220402
  3. DOXORUBICIN [Suspect]
     Active Substance: DOXORUBICIN
     Indication: Soft tissue neoplasm
     Route: 065
     Dates: start: 20220402

REACTIONS (5)
  - Hypoxia [Recovering/Resolving]
  - Hydronephrosis [Unknown]
  - Neutropenia [Unknown]
  - Embolism [Recovering/Resolving]
  - Pulmonary embolism [Unknown]

NARRATIVE: CASE EVENT DATE: 20220325
